FAERS Safety Report 4408464-4 (Version None)
Quarter: 2004Q3

REPORT INFORMATION
  Report Type: 
  Country: None (occurrence: None)
  Receive Date: 20040726
  Receipt Date: 20040726
  Transmission Date: 20050211
  Serious: Yes (Other)
  Sender: FDA-Public Use
  Company Number: None

PATIENT

DRUGS (3)
  1. DIHYDROERGOTAMINE 1 MG/ML   1ML VIAL BEDFORD LABORATORIES [Suspect]
  2. KETOROLAC 30MG/ML  1ML [Suspect]
  3. KETOROLAC 60MG/2ML [Suspect]

REACTIONS (1)
  - MEDICATION ERROR [None]
